FAERS Safety Report 5962342-8 (Version None)
Quarter: 2008Q4

REPORT INFORMATION
  Report Type: 
  Country: None (occurrence: None)
  Receive Date: 20081119
  Receipt Date: 20080923
  Transmission Date: 20090506
  Serious: No
  Sender: FDA-Public Use
  Company Number: WAES 0809USA04208

PATIENT
  Age: 75 Year
  Sex: Female

DRUGS (9)
  1. JANUVIA [Suspect]
     Indication: TYPE 2 DIABETES MELLITUS
     Dosage: 100 MG/DAILY/PO
     Route: 048
     Dates: start: 20070101
  2. AVAPRO [Concomitant]
  3. CRESTOR [Concomitant]
  4. GLUCOPHAGE [Concomitant]
  5. HYDRODIURIL [Concomitant]
  6. PRANDIN [Concomitant]
  7. PRILOSEC [Concomitant]
  8. ZETIA [Concomitant]
  9. ATENOLOL [Concomitant]

REACTIONS (1)
  - BLOOD CREATININE ABNORMAL [None]
